FAERS Safety Report 21619685 (Version 2)
Quarter: 2022Q4

REPORT INFORMATION
  Report Type: Spontaneous
  Country: US (occurrence: US)
  Receive Date: 20221121
  Receipt Date: 20221121
  Transmission Date: 20230113
  Serious: Yes (Other)
  Sender: FDA-Public Use
  Company Number: US-ABBVIE-4207443

PATIENT
  Age: 11 Year
  Sex: Male
  Weight: 33 kg

DRUGS (1)
  1. LUPRON [Suspect]
     Active Substance: LEUPROLIDE ACETATE
     Indication: Pubertal disorder
     Route: 065
     Dates: start: 20220805

REACTIONS (2)
  - Granuloma [Unknown]
  - Pain [Unknown]

NARRATIVE: CASE EVENT DATE: 20221001
